FAERS Safety Report 7490704-9 (Version None)
Quarter: 2011Q2

REPORT INFORMATION
  Report Type: 
  Country: None (occurrence: None)
  Receive Date: 20110517
  Receipt Date: 20110517
  Transmission Date: 20111010
  Serious: No
  Sender: FDA-Public Use
  Company Number: None

PATIENT
  Age: 62 Year
  Sex: Male

DRUGS (8)
  1. REVLIMID [Suspect]
     Indication: HYPERGAMMAGLOBULINAEMIA BENIGN MONOCLONAL
     Dosage: 10MG DAILY ORAL
     Route: 048
     Dates: start: 20090808, end: 20100101
  2. ADVAIR DISKUS 100/50 [Concomitant]
  3. DEXAMETHASONE [Concomitant]
  4. IPRATROPIUM BROMIDE [Concomitant]
  5. NEURONTIN [Concomitant]
  6. AMITRIPTYLINE HCL [Concomitant]
  7. FLOMAX [Concomitant]
  8. VICODIN [Concomitant]

REACTIONS (1)
  - DEEP VEIN THROMBOSIS [None]
